FAERS Safety Report 9918410 (Version 1)
Quarter: 2014Q1

REPORT INFORMATION
  Report Type: Spontaneous
  Country: US (occurrence: US)
  Receive Date: 20140224
  Receipt Date: 20140224
  Transmission Date: 20141002
  Serious: No
  Sender: FDA-Public Use
  Company Number: US-BIOGENIDEC-2014BI016365

PATIENT
  Age: 57 Year
  Sex: Female

DRUGS (9)
  1. AVONEX [Suspect]
     Indication: MULTIPLE SCLEROSIS
     Route: 030
  2. ASPIRIN LOW DOSE [Concomitant]
  3. CALCIUM + D [Concomitant]
  4. FISH OIL [Concomitant]
  5. METFORMIN HCI [Concomitant]
  6. MILK THISTLE [Concomitant]
  7. OXYBUTYNIN CHLORIDE [Concomitant]
  8. SIMVASTATIN [Concomitant]
  9. VITAMIN E BLEND [Concomitant]

REACTIONS (2)
  - Adverse event [Unknown]
  - Injection site erythema [Unknown]
